FAERS Safety Report 6315461-0 (Version None)
Quarter: 2009Q3

REPORT INFORMATION
  Report Type: 
  Country: None (occurrence: None)
  Receive Date: 20090819
  Receipt Date: 20090731
  Transmission Date: 20100115
  Serious: Yes (Hospitalization, Disabling)
  Sender: FDA-Public Use
  Company Number: PT-GENENTECH-287677

PATIENT
  Sex: Female

DRUGS (7)
  1. AVASTIN [Suspect]
     Indication: CHOROIDAL NEOVASCULARISATION
     Dosage: UNK MG, UNK
     Route: 031
     Dates: start: 20090717, end: 20090717
  2. TICLOPIDINE HYDROCHLORIDE [Concomitant]
     Indication: DRUG USE FOR UNKNOWN INDICATION
     Dosage: UNK
  3. LEVOTHYROXINE SODIUM [Concomitant]
     Indication: DRUG USE FOR UNKNOWN INDICATION
     Dosage: UNK
  4. NORFLOXACIN [Concomitant]
     Indication: DRUG USE FOR UNKNOWN INDICATION
     Dosage: UNK
     Dates: start: 20090717, end: 20090717
  5. CAPTOPRIL [Concomitant]
     Indication: DRUG USE FOR UNKNOWN INDICATION
     Dosage: UNK
  6. OXYBUPROCAINE HYDROCHLORIDE [Concomitant]
     Indication: DRUG USE FOR UNKNOWN INDICATION
     Dosage: UNK
     Dates: start: 20090717, end: 20090717
  7. POVIDONE IODINE [Concomitant]
     Indication: DRUG USE FOR UNKNOWN INDICATION
     Dosage: UNK
     Dates: start: 20090717, end: 20090717

REACTIONS (8)
  - CONJUNCTIVAL HYPERAEMIA [None]
  - CORNEAL DISORDER [None]
  - CORNEAL OEDEMA [None]
  - ENDOPHTHALMITIS [None]
  - EYE PAIN [None]
  - PURULENT DISCHARGE [None]
  - VISUAL ACUITY REDUCED [None]
  - VITRITIS [None]
